FAERS Safety Report 4362167-3 (Version None)
Quarter: 2004Q2

REPORT INFORMATION
  Report Type: 
  Country: None (occurrence: None)
  Receive Date: 20040520
  Receipt Date: 20040520
  Transmission Date: 20050107
  Serious: Yes (Hospitalization)
  Sender: FDA-Public Use
  Company Number: None

PATIENT
  Sex: Male
  Weight: 74.8435 kg

DRUGS (1)
  1. PHENYTOIN [Suspect]
     Dosage: 200 MG QAM 300 MG Q PM

REACTIONS (9)
  - ATAXIA [None]
  - DRUG TOXICITY [None]
  - DYSGEUSIA [None]
  - GAIT DISTURBANCE [None]
  - LETHARGY [None]
  - LIVER FUNCTION TEST ABNORMAL [None]
  - NAUSEA [None]
  - NEUTROPENIA [None]
  - VISION BLURRED [None]
